FAERS Safety Report 19880162 (Version 1)
Quarter: 2021Q3

REPORT INFORMATION
  Report Type: Report from Study
  Country: None (occurrence: CO)
  Receive Date: 20210924
  Receipt Date: 20210924
  Transmission Date: 20211014
  Serious: Yes (Other)
  Sender: FDA-Public Use
  Company Number: CO-ABBVIE-21K-036-4008537-00

PATIENT
  Age: 65 Year
  Sex: Female
  Weight: 46 kg

DRUGS (1)
  1. HUMIRA [Suspect]
     Active Substance: ADALIMUMAB
     Indication: RHEUMATOID ARTHRITIS
     Route: 058
     Dates: start: 20200211, end: 20210828

REACTIONS (8)
  - Pruritus allergic [Recovering/Resolving]
  - Dermatitis allergic [Recovering/Resolving]
  - Folliculitis [Recovering/Resolving]
  - Skin disorder [Recovered/Resolved]
  - Eye disorder [Recovered/Resolved]
  - Skin fibrosis [Recovering/Resolving]
  - Acanthosis [Recovering/Resolving]
  - Furuncle [Recovered/Resolved]

NARRATIVE: CASE EVENT DATE: 2021
